FAERS Safety Report 8344113-0 (Version None)
Quarter: 2012Q2

REPORT INFORMATION
  Report Type: 
  Country: None (occurrence: None)
  Receive Date: 20120504
  Receipt Date: 20120424
  Transmission Date: 20120825
  Serious: Yes (Other)
  Sender: FDA-Public Use
  Company Number: SE-GDP-12413529

PATIENT
  Sex: Female

DRUGS (3)
  1. KETOCONAZOLE [Concomitant]
  2. DIFFERIN (ADAPALINE)  0.1 % GEL [Suspect]
     Indication: ACNE
     Dosage: TOPICAL
     Route: 061
     Dates: start: 20111125, end: 20120202
  3. PROPYLESS [Concomitant]

REACTIONS (1)
  - ANGIOEDEMA [None]
